FAERS Safety Report 16418071 (Version 5)
Quarter: 2023Q1

REPORT INFORMATION
  Report Type: Spontaneous
  Country: US (occurrence: None)
  Receive Date: 20190611
  Receipt Date: 20230221
  Transmission Date: 20230418
  Serious: Yes (Hospitalization, Other)
  Sender: FDA-Public Use
  Company Number: 2018SF33532

PATIENT
  Age: 610 Month
  Sex: Male
  Weight: 72.6 kg

DRUGS (51)
  1. NEXIUM [Suspect]
     Active Substance: ESOMEPRAZOLE MAGNESIUM
     Indication: Gastrooesophageal reflux disease
     Route: 048
     Dates: start: 199501, end: 201712
  2. NEXIUM [Suspect]
     Active Substance: ESOMEPRAZOLE MAGNESIUM
     Indication: Gastrooesophageal reflux disease
     Route: 048
     Dates: start: 200103, end: 20171026
  3. PRILOSEC [Suspect]
     Active Substance: OMEPRAZOLE MAGNESIUM
     Indication: Gastrooesophageal reflux disease
     Route: 048
     Dates: start: 199501, end: 201712
  4. PRILOSEC [Suspect]
     Active Substance: OMEPRAZOLE MAGNESIUM
     Indication: Gastrooesophageal reflux disease
     Route: 048
     Dates: start: 19950101, end: 20171231
  5. PRILOSEC [Suspect]
     Active Substance: OMEPRAZOLE MAGNESIUM
     Indication: Gastrooesophageal reflux disease
     Dosage: GENERIC
     Route: 065
     Dates: start: 20110630, end: 20111114
  6. PRILOSEC OTC [Suspect]
     Active Substance: OMEPRAZOLE MAGNESIUM
     Indication: Gastrooesophageal reflux disease
     Route: 048
     Dates: start: 199501, end: 201712
  7. PRILOSEC OTC [Suspect]
     Active Substance: OMEPRAZOLE MAGNESIUM
     Indication: Gastrooesophageal reflux disease
     Route: 048
     Dates: start: 200307, end: 20171026
  8. PREVACID [Suspect]
     Active Substance: LANSOPRAZOLE
     Indication: Gastrooesophageal reflux disease
     Route: 065
     Dates: start: 199501, end: 201712
  9. PREVACID [Suspect]
     Active Substance: LANSOPRAZOLE
     Indication: Gastrooesophageal reflux disease
     Route: 065
     Dates: start: 19950101, end: 20171231
  10. PREVACID [Suspect]
     Active Substance: LANSOPRAZOLE
     Indication: Gastrooesophageal reflux disease
     Route: 065
     Dates: start: 19950601, end: 20171231
  11. PROTONIX [Suspect]
     Active Substance: PANTOPRAZOLE SODIUM
     Indication: Gastrooesophageal reflux disease
     Route: 065
     Dates: start: 199501, end: 201712
  12. PROTONIX [Suspect]
     Active Substance: PANTOPRAZOLE SODIUM
     Indication: Gastrooesophageal reflux disease
     Route: 065
     Dates: start: 19950601, end: 20170622
  13. PROTONIX [Suspect]
     Active Substance: PANTOPRAZOLE SODIUM
     Indication: Gastrooesophageal reflux disease
     Route: 065
     Dates: start: 20101230
  14. PROTONIX [Suspect]
     Active Substance: PANTOPRAZOLE SODIUM
     Indication: Gastrooesophageal reflux disease
     Dosage: GENERIC
     Route: 065
     Dates: start: 20100602, end: 20170622
  15. PROTONIX [Suspect]
     Active Substance: PANTOPRAZOLE SODIUM
     Indication: Gastrooesophageal reflux disease
  16. AMOXICILLIN [Concomitant]
     Active Substance: AMOXICILLIN
  17. FUROSEMIDE [Concomitant]
     Active Substance: FUROSEMIDE
  18. ACETAMINOPHEN [Concomitant]
     Active Substance: ACETAMINOPHEN
  19. PREDNISONE [Concomitant]
     Active Substance: PREDNISONE
  20. ATORVASTATIN [Concomitant]
     Active Substance: ATORVASTATIN
     Indication: Blood cholesterol increased
     Dates: start: 2000, end: 2018
  21. LISINOPRIL [Concomitant]
     Active Substance: LISINOPRIL
     Indication: Cardiac disorder
     Dates: start: 2008, end: 2018
  22. NASONEX [Concomitant]
     Active Substance: MOMETASONE FUROATE
     Indication: Asthma
     Dates: start: 2000, end: 2018
  23. SYMBICORT [Concomitant]
     Active Substance: BUDESONIDE\FORMOTEROL FUMARATE DIHYDRATE
     Indication: Asthma
     Dates: start: 2000, end: 2018
  24. LASIX [Concomitant]
     Active Substance: FUROSEMIDE
     Indication: Renal disorder
     Dates: start: 2000, end: 2008
  25. AMLODIPINE [Concomitant]
     Active Substance: AMLODIPINE BESYLATE
     Indication: Hypertension
     Dates: start: 2000, end: 2018
  26. XANAX [Concomitant]
     Active Substance: ALPRAZOLAM
     Indication: Anxiety
     Dates: start: 20070814, end: 2018
  27. ASPIRIN [Concomitant]
     Active Substance: ASPIRIN
     Indication: Cardiac disorder
     Dates: start: 2000, end: 2008
  28. PEPCID [Concomitant]
     Active Substance: FAMOTIDINE
     Dates: start: 2010, end: 2011
  29. TAGAMET [Concomitant]
     Active Substance: CIMETIDINE
     Dates: start: 2010, end: 2011
  30. ZANTAC [Concomitant]
     Active Substance: RANITIDINE HYDROCHLORIDE
     Dates: start: 2010, end: 2011
  31. TUMS [Concomitant]
     Active Substance: CALCIUM CARBONATE
     Dosage: AS NEEDED.
     Dates: start: 1982
  32. ROLAIDS [Concomitant]
     Active Substance: CALCIUM CARBONATE\MAGNESIUM HYDROXIDE
     Dosage: AS NEEDED.
     Dates: start: 1982, end: 2000
  33. HYDRALAZINE [Concomitant]
     Active Substance: HYDRALAZINE HYDROCHLORIDE
     Dosage: AS NEEDED.
     Dates: start: 1982, end: 2000
  34. ISOSORBIDE DINITRATE [Concomitant]
     Active Substance: ISOSORBIDE DINITRATE
     Dosage: AS NEEDED.
     Dates: start: 1982, end: 2000
  35. PLAVIX [Concomitant]
     Active Substance: CLOPIDOGREL BISULFATE
     Dosage: AS NEEDED.
     Dates: start: 1982, end: 2000
  36. METOPROLOL [Concomitant]
     Active Substance: METOPROLOL
     Dosage: AS NEEDED.
     Dates: start: 1982, end: 2000
  37. MULTAQ [Concomitant]
     Active Substance: DRONEDARONE
     Dosage: AS NEEDED.
     Dates: start: 1982, end: 2000
  38. FLUVIRIN NOS [Concomitant]
     Active Substance: INFLUENZA VIRUS VACCINE
     Dosage: AS NEEDED.
     Dates: start: 1982, end: 2000
  39. HYDROCODONE [Concomitant]
     Active Substance: HYDROCODONE
     Dosage: AS NEEDED.
     Dates: start: 1982, end: 2000
  40. COLCHICINE [Concomitant]
     Active Substance: COLCHICINE
     Dosage: AS NEEDED.
     Dates: start: 1982, end: 2000
  41. METHYLPREDNISOLONE [Concomitant]
     Active Substance: METHYLPREDNISOLONE
     Dosage: AS NEEDED.
     Dates: start: 1982, end: 2000
  42. AMIODARONE [Concomitant]
     Active Substance: AMIODARONE
     Dosage: AS NEEDED.
     Dates: start: 1982, end: 2000
  43. VIAGRA [Concomitant]
     Active Substance: SILDENAFIL CITRATE
     Dosage: AS NEEDED.
     Dates: start: 1982, end: 2000
  44. CARVEDILOL [Concomitant]
     Active Substance: CARVEDILOL
     Dosage: AS NEEDED.
     Dates: start: 1982, end: 2000
  45. MIRTAZAPINE [Concomitant]
     Active Substance: MIRTAZAPINE
     Dosage: AS NEEDED.
     Dates: start: 1982, end: 2000
  46. TRAZODONE [Concomitant]
     Active Substance: TRAZODONE HYDROCHLORIDE
     Dosage: AS NEEDED.
     Dates: start: 1982, end: 2000
  47. COMBIVENT [Concomitant]
     Active Substance: ALBUTEROL SULFATE\IPRATROPIUM BROMIDE
     Dosage: AS NEEDED.
     Dates: start: 1982, end: 2000
  48. TRICOR [Concomitant]
     Active Substance: FENOFIBRATE
     Dosage: AS NEEDED.
     Dates: start: 1982, end: 2000
  49. FLOVENT [Concomitant]
     Active Substance: FLUTICASONE PROPIONATE
     Dosage: AS NEEDED.
     Dates: start: 1982, end: 2000
  50. AVAPRO [Concomitant]
     Active Substance: IRBESARTAN
     Dosage: AS NEEDED.
     Dates: start: 1982, end: 2000
  51. UROXATRAL [Concomitant]
     Active Substance: ALFUZOSIN HYDROCHLORIDE
     Dosage: AS NEEDED.
     Dates: start: 1982, end: 2000

REACTIONS (11)
  - Chronic kidney disease [Not Recovered/Not Resolved]
  - End stage renal disease [Unknown]
  - Acute kidney injury [Not Recovered/Not Resolved]
  - Renal injury [Unknown]
  - Renal failure [Unknown]
  - Nephrogenic anaemia [Unknown]
  - Tubulointerstitial nephritis [Not Recovered/Not Resolved]
  - Chronic kidney disease-mineral and bone disorder [Unknown]
  - Hyperparathyroidism secondary [Unknown]
  - Dyspepsia [Unknown]
  - Gastrooesophageal reflux disease [Unknown]

NARRATIVE: CASE EVENT DATE: 20080701
